FAERS Safety Report 13112908 (Version 1)
Quarter: 2017Q1

REPORT INFORMATION
  Report Type: Spontaneous
  Country: US (occurrence: US)
  Receive Date: 20170112
  Receipt Date: 20170112
  Transmission Date: 20170428
  Serious: No
  Sender: FDA-Public Use
  Company Number: None

PATIENT
  Age: 68 Year
  Sex: Male

DRUGS (1)
  1. REPATHA [Suspect]
     Active Substance: EVOLOCUMAB

REACTIONS (3)
  - Exercise tolerance decreased [None]
  - Muscle fatigue [None]
  - Muscular weakness [None]

NARRATIVE: CASE EVENT DATE: 20170112
